FAERS Safety Report 11869287 (Version 3)
Quarter: 2016Q1

REPORT INFORMATION
  Report Type: Spontaneous
  Country: JP (occurrence: JP)
  Receive Date: 20151226
  Receipt Date: 20160325
  Transmission Date: 20160526
  Serious: Yes (Hospitalization, Other)
  Sender: FDA-Public Use
  Company Number: PHJP2015JP023405

PATIENT
  Age: 69 Year
  Sex: Male
  Weight: 81 kg

DRUGS (9)
  1. METGLUCO [Suspect]
     Active Substance: METFORMIN HYDROCHLORIDE
     Indication: DIABETES MELLITUS
     Dosage: 250 MG, TID
     Route: 048
  2. ADALAT [Suspect]
     Active Substance: NIFEDIPINE
     Indication: HYPERTENSION
     Dosage: 20 MG, QD
     Route: 048
  3. CABASER [Suspect]
     Active Substance: CABERGOLINE
     Indication: PITUITARY TUMOUR BENIGN
     Dosage: 1 MG, QW2 (TWICE A WEEK)
     Route: 048
     Dates: start: 20130322
  4. TRAZENTA [Suspect]
     Active Substance: LINAGLIPTIN
     Indication: DIABETES MELLITUS
     Dosage: 5 MG, QD
     Route: 048
  5. SANDOSTATIN LAR DEPOT [Suspect]
     Active Substance: OCTREOTIDE ACETATE
     Indication: PITUITARY TUMOUR BENIGN
     Dosage: 40 MG, QMO (ONCE EVERY 4 WEEKS)
     Route: 030
     Dates: start: 20060926
  6. SEIBULE [Suspect]
     Active Substance: MIGLITOL
     Indication: DIABETES MELLITUS
     Dosage: 50 MG, TID
     Route: 048
  7. URSO [Suspect]
     Active Substance: URSODIOL
     Indication: LIVER DISORDER
     Dosage: 100 MG, TID
     Route: 048
  8. MICAMLO [Suspect]
     Active Substance: AMLODIPINE BESYLATE\TELMISARTAN
     Indication: HYPERTENSION
     Dosage: 1 DF, QD
     Route: 048
  9. HUMULIN NOS [Suspect]
     Active Substance: INSULIN HUMAN
     Indication: DIABETES MELLITUS
     Dosage: 21 IU, UNK
     Route: 058

REACTIONS (4)
  - Cerebral infarction [Recovering/Resolving]
  - Speech disorder [Recovering/Resolving]
  - Haematuria [Unknown]
  - Bladder cancer [Recovering/Resolving]

NARRATIVE: CASE EVENT DATE: 20150723
